FAERS Safety Report 17720994 (Version 1)
Quarter: 2020Q2

REPORT INFORMATION
  Report Type: Spontaneous
  Country: SI (occurrence: SI)
  Receive Date: 20200428
  Receipt Date: 20200428
  Transmission Date: 20200714
  Serious: Yes (Other)
  Sender: FDA-Public Use
  Company Number: SI-EDENBRIDGE PHARMACEUTICALS, LLC-SI-2020EDE000008

PATIENT
  Age: 53 Year
  Sex: Female

DRUGS (6)
  1. LEVODOPA [Concomitant]
     Active Substance: LEVODOPA
     Indication: PARKINSONISM
  2. LEVODOPA [Suspect]
     Active Substance: LEVODOPA
     Indication: MULTIPLE SYSTEM ATROPHY
     Dosage: UNK
     Dates: start: 201705
  3. LEVODOPA [Concomitant]
     Active Substance: LEVODOPA
     Indication: MULTIPLE SYSTEM ATROPHY
     Dosage: UNK
     Route: 048
  4. LEVODOPA [Suspect]
     Active Substance: LEVODOPA
     Indication: PARKINSONISM
  5. CARBIDOPA. [Suspect]
     Active Substance: CARBIDOPA
     Indication: MULTIPLE SYSTEM ATROPHY
     Dosage: UNK
     Dates: start: 201705
  6. CARBIDOPA. [Suspect]
     Active Substance: CARBIDOPA
     Indication: PARKINSONISM

REACTIONS (2)
  - Polyneuropathy [Unknown]
  - Condition aggravated [Unknown]
